FAERS Safety Report 6079822-X (Version None)
Quarter: 2009Q1

REPORT INFORMATION
  Report Type: 
  Country: None (occurrence: None)
  Receive Date: 20090217
  Receipt Date: 20090212
  Transmission Date: 20090719
  Serious: Yes (Other)
  Sender: FDA-Public Use
  Company Number: US-ASTRAZENECA-2009UW04133

PATIENT
  Age: 64 Year
  Sex: Female

DRUGS (10)
  1. CRESTOR [Suspect]
     Indication: BLOOD CHOLESTEROL INCREASED
     Route: 048
     Dates: start: 20070101
  2. CRESTOR [Suspect]
     Dosage: HAS BEEN ON CRESTOR 40 MG
     Route: 048
  3. VITAMIN B-12 [Concomitant]
     Route: 048
  4. VITAMIN E [Concomitant]
     Route: 048
  5. METOPROLOL TARTRATE [Concomitant]
     Route: 048
  6. FOLIC ACID [Concomitant]
     Route: 048
  7. NORVASC [Concomitant]
     Route: 048
  8. FLUOXETINE HCL [Concomitant]
     Route: 048
  9. RAMIPRIL [Concomitant]
     Route: 048
  10. ASPIRIN [Concomitant]
     Route: 048

REACTIONS (2)
  - HEART VALVE INCOMPETENCE [None]
  - THERAPEUTIC RESPONSE UNEXPECTED [None]
